FAERS Safety Report 8206030-6 (Version None)
Quarter: 2012Q1

REPORT INFORMATION
  Report Type: 
  Country: None (occurrence: None)
  Receive Date: 20120313
  Receipt Date: 20120229
  Transmission Date: 20120608
  Serious: Yes (Death, Hospitalization, Other)
  Sender: FDA-Public Use
  Company Number: US-MYLANLABS-2012S1005158

PATIENT
  Sex: Female
  Weight: 129.28 kg

DRUGS (41)
  1. DIGOXIN [Suspect]
     Route: 048
     Dates: start: 20070404, end: 20080327
  2. COUMADIN [Concomitant]
     Dosage: ALTERNATING WITH 3MG QOD
  3. FERROUS SULFATE TAB [Concomitant]
  4. GUAIFENESIN [Concomitant]
  5. LANTUS [Concomitant]
  6. BUMEX [Concomitant]
  7. HUMALOG [Concomitant]
  8. NOVOLIN 70/30 [Concomitant]
     Dosage: 2 - 8 UNITS SUBCU 30 MINUTES BEFORE MEALS AND HS
     Route: 058
  9. NYSTATIN [Concomitant]
  10. SODIUM CHLORIDE [Concomitant]
     Dosage: FLUSH 2.5 ML IV Q8H
  11. ZOFRAN [Concomitant]
     Indication: NAUSEA
  12. ALLOPURINOL [Concomitant]
  13. ALTACE [Concomitant]
  14. CYMBALTA [Concomitant]
  15. NITROGLYCERIN [Concomitant]
  16. SINGULAIR [Concomitant]
  17. SIMVASTATIN [Concomitant]
  18. DOBUTAMINE HCL [Concomitant]
  19. ACETAMINOPHEN [Concomitant]
     Dosage: 1 TO 2 TABS PO Q6H PRN
     Route: 048
  20. REGLAN [Concomitant]
     Route: 042
  21. ASPIRIN [Concomitant]
  22. CLOTRIMAZOLE [Concomitant]
  23. LASIX [Concomitant]
  24. SPIRONOLACTONE [Concomitant]
  25. ALBUTEROL SULFATE [Concomitant]
  26. CLINDAMYCIN [Concomitant]
  27. ZAROXOLYN [Concomitant]
  28. MORPHINE [Concomitant]
  29. ATIVAN [Concomitant]
  30. BENZONATATE [Concomitant]
     Route: 048
  31. LEVEMIR [Concomitant]
  32. LIPITOR [Concomitant]
  33. MULTI-VITAMINS [Concomitant]
     Route: 048
  34. COREG [Concomitant]
  35. DARVOCET [Concomitant]
     Indication: PAIN
  36. POTASSIUM CHLORIDE [Concomitant]
  37. PRILOSEC [Concomitant]
  38. SYNTHROID [Concomitant]
  39. TYLENOL [Concomitant]
  40. PANTOPRAZOLE [Concomitant]
  41. LOPERAMIDE [Concomitant]

REACTIONS (87)
  - PULMONARY OEDEMA [None]
  - ABDOMINAL TENDERNESS [None]
  - ASCITES [None]
  - BRAIN NATRIURETIC PEPTIDE INCREASED [None]
  - DIARRHOEA [None]
  - GASTRITIS [None]
  - HAEMORRHOIDS [None]
  - NEUROPATHY PERIPHERAL [None]
  - OXYGEN SUPPLEMENTATION [None]
  - ABDOMINAL PAIN [None]
  - ABASIA [None]
  - CARDIOMEGALY [None]
  - DYSPHAGIA [None]
  - FLUID RETENTION [None]
  - ILL-DEFINED DISORDER [None]
  - IRON DEFICIENCY ANAEMIA [None]
  - OSTEOARTHRITIS [None]
  - VULVOVAGINAL ERYTHEMA [None]
  - ANAEMIA [None]
  - CARDIAC ANEURYSM [None]
  - DIABETES MELLITUS INADEQUATE CONTROL [None]
  - HAEMOGLOBIN DECREASED [None]
  - BLISTER [None]
  - BLOOD ALBUMIN DECREASED [None]
  - BLOOD CREATININE INCREASED [None]
  - DIABETIC RETINOPATHY [None]
  - JUGULAR VEIN DISTENSION [None]
  - MOBILITY DECREASED [None]
  - SKIN INDURATION [None]
  - CARDIAC FAILURE CONGESTIVE [None]
  - UNRESPONSIVE TO STIMULI [None]
  - CONDITION AGGRAVATED [None]
  - DIVERTICULUM [None]
  - DYSKINESIA [None]
  - HEPATOMEGALY [None]
  - IMPAIRED GASTRIC EMPTYING [None]
  - LYMPHADENOPATHY [None]
  - OEDEMA PERIPHERAL [None]
  - OXYGEN SATURATION DECREASED [None]
  - PULMONARY CONGESTION [None]
  - VENTRICULAR HYPOKINESIA [None]
  - ATRIAL FIBRILLATION [None]
  - ASTHENIA [None]
  - COUGH [None]
  - ISCHAEMIC CARDIOMYOPATHY [None]
  - MITRAL VALVE INCOMPETENCE [None]
  - TRICUSPID VALVE INCOMPETENCE [None]
  - CHRONIC OBSTRUCTIVE PULMONARY DISEASE [None]
  - DIVERTICULITIS [None]
  - DYSPNOEA EXERTIONAL [None]
  - HEPATIC LESION [None]
  - OBESITY [None]
  - RENAL ATROPHY [None]
  - DEATH [None]
  - CONGESTIVE CARDIOMYOPATHY [None]
  - PULMONARY HYPERTENSION [None]
  - BREATH SOUNDS ABNORMAL [None]
  - CARDIAC MURMUR [None]
  - DYSPEPSIA [None]
  - URINE OUTPUT DECREASED [None]
  - VULVOVAGINAL CANDIDIASIS [None]
  - VAGINAL DISCHARGE [None]
  - FATIGUE [None]
  - GENERALISED OEDEMA [None]
  - PLEURAL EFFUSION [None]
  - ADRENAL ADENOMA [None]
  - GENERAL PHYSICAL CONDITION ABNORMAL [None]
  - HAEMATOCRIT DECREASED [None]
  - HOSPICE CARE [None]
  - LEFT ATRIAL DILATATION [None]
  - MYOCLONUS [None]
  - PAIN [None]
  - SINUS HEADACHE [None]
  - VULVOVAGINAL MYCOTIC INFECTION [None]
  - TYPE 2 DIABETES MELLITUS [None]
  - ADRENAL MASS [None]
  - BEDRIDDEN [None]
  - BLOOD CALCIUM DECREASED [None]
  - BLOOD GLUCOSE DECREASED [None]
  - BLOOD UREA INCREASED [None]
  - EJECTION FRACTION DECREASED [None]
  - PALLOR [None]
  - TONGUE ULCERATION [None]
  - URINARY TRACT INFECTION [None]
  - WEIGHT INCREASED [None]
  - DIZZINESS [None]
  - ABDOMINAL PAIN UPPER [None]
